FAERS Safety Report 18453323 (Version 2)
Quarter: 2022Q1

REPORT INFORMATION
  Report Type: Report from Study
  Country: GB (occurrence: GB)
  Receive Date: 20201102
  Receipt Date: 20220101
  Transmission Date: 20220423
  Serious: Yes (Hospitalization, Other)
  Sender: FDA-Public Use
  Company Number: GB-JNJFOC-20201041005

PATIENT

DRUGS (1)
  1. DARZALEX [Suspect]
     Active Substance: DARATUMUMAB
     Indication: Plasma cell myeloma
     Route: 042

REACTIONS (8)
  - Endocarditis [Unknown]
  - Cytomegalovirus infection reactivation [Unknown]
  - Escherichia bacteraemia [Unknown]
  - Infusion related reaction [Unknown]
  - Pneumonia [Unknown]
  - Sepsis [Unknown]
  - Lower respiratory tract infection [Unknown]
  - Upper respiratory tract infection [Unknown]
